FAERS Safety Report 20957027 (Version 3)
Quarter: 2022Q4

REPORT INFORMATION
  Report Type: Spontaneous
  Country: US (occurrence: US)
  Receive Date: 20220614
  Receipt Date: 20221228
  Transmission Date: 20230112
  Serious: Yes (Hospitalization, Other)
  Sender: FDA-Public Use
  Company Number: US-PFIZER INC-202200799045

PATIENT
  Age: 68 Year
  Sex: Female
  Weight: 78.4 kg

DRUGS (15)
  1. AMIODARONE HYDROCHLORIDE [Suspect]
     Active Substance: AMIODARONE HYDROCHLORIDE
     Dosage: 200 MG, DAILY
     Route: 048
  2. APIXABAN [Concomitant]
     Active Substance: APIXABAN
     Dosage: 2.5 MG, 2X/DAY
  3. ATORVASTATIN CALCIUM [Concomitant]
     Active Substance: ATORVASTATIN CALCIUM
     Dosage: 40 MG, DAILY
  4. FUROSEMIDE [Concomitant]
     Active Substance: FUROSEMIDE
     Dosage: 80 MG, 2X/DAY
  5. PANTOPRAZOLE [Concomitant]
     Active Substance: PANTOPRAZOLE
     Dosage: 40 MG, DAILY
  6. FLUOXETINE [Concomitant]
     Active Substance: FLUOXETINE HYDROCHLORIDE
     Dosage: 20 MG, DAILY
  7. FENOFIBRATE [Concomitant]
     Active Substance: FENOFIBRATE
     Dosage: 145 MG, DAILY
  8. FERROUS SULFATE [Concomitant]
     Active Substance: FERROUS SULFATE
     Dosage: 325 MG, DAILY
  9. FLUTICASONE FUROATE\UMECLIDINIUM BROMIDE\VILANTEROL TRIFENATATE [Concomitant]
     Active Substance: FLUTICASONE FUROATE\UMECLIDINIUM BROMIDE\VILANTEROL TRIFENATATE
     Dosage: 1 INHALED PUFF, DAILY
  10. ISOSORBIDE DINITRATE [Concomitant]
     Active Substance: ISOSORBIDE DINITRATE
     Dosage: 10 MG, DAILY
  11. LORATADINE [Concomitant]
     Active Substance: LORATADINE
     Dosage: 10 MG, DAILY
  12. MIDODRINE [Concomitant]
     Active Substance: MIDODRINE
     Dosage: 10 MG, 2X/DAY
  13. POTASSIUM CHLORIDE [Concomitant]
     Active Substance: POTASSIUM CHLORIDE
     Dosage: 20 MEQ, DAILY
  14. CARVEDILOL [Concomitant]
     Active Substance: CARVEDILOL
     Indication: Hypertension
  15. HYDRALAZINE [Concomitant]
     Active Substance: HYDRALAZINE HYDROCHLORIDE
     Indication: Hypertension
     Dosage: UNK

REACTIONS (4)
  - Hyperammonaemia [Recovering/Resolving]
  - Encephalopathy [Recovering/Resolving]
  - Hepatotoxicity [Recovering/Resolving]
  - Hypothyroidism [Recovered/Resolved]
